FAERS Safety Report 7129331-1 (Version None)
Quarter: 2010Q4

REPORT INFORMATION
  Report Type: 
  Country: None (occurrence: None)
  Receive Date: 20101130
  Receipt Date: 20101117
  Transmission Date: 20110411
  Serious: Yes (Hospitalization)
  Sender: FDA-Public Use
  Company Number: US-WATSON-2010-15026

PATIENT
  Sex: Female
  Weight: 104.31 kg

DRUGS (1)
  1. FORTAMET [Suspect]
     Indication: TYPE 2 DIABETES MELLITUS
     Dosage: 1000 MG IN THE MORNING AND 1000 MG IN THE EVENING
     Route: 048
     Dates: start: 20100901

REACTIONS (2)
  - DYSPHAGIA [None]
  - THYROID OPERATION [None]
